FAERS Safety Report 19098377 (Version 1)
Quarter: 2021Q2

REPORT INFORMATION
  Report Type: Spontaneous
  Country: US (occurrence: US)
  Receive Date: 20210406
  Receipt Date: 20210406
  Transmission Date: 20210717
  Serious: Yes (Life-Threatening, Hospitalization)
  Sender: FDA-Public Use
  Company Number: US-TEVA-2021-US-1895655

PATIENT
  Age: 20 Year
  Sex: Male

DRUGS (5)
  1. KETAMINE [Suspect]
     Active Substance: KETAMINE
     Indication: TOXICITY TO VARIOUS AGENTS
     Route: 065
  2. FENTANYL. [Suspect]
     Active Substance: FENTANYL
     Indication: SUICIDE ATTEMPT
     Route: 048
  3. PROPOFOL. [Suspect]
     Active Substance: PROPOFOL
     Indication: TOXICITY TO VARIOUS AGENTS
     Dosage: 80MCG/KG
     Route: 065
  4. PROPOFOL. [Suspect]
     Active Substance: PROPOFOL
     Dosage: 140MCG/KG
     Route: 065
  5. FENTANYL. [Suspect]
     Active Substance: FENTANYL
     Indication: TOXICITY TO VARIOUS AGENTS
     Dosage: 100 MCG
     Route: 040

REACTIONS (9)
  - Agitation [Unknown]
  - Tachycardia [Unknown]
  - Toxicity to various agents [Unknown]
  - Suicide attempt [Unknown]
  - Hypertension [Unknown]
  - Acute respiratory distress syndrome [Unknown]
  - Vomiting [Unknown]
  - Somnolence [Unknown]
  - Drug ineffective [Unknown]
